FAERS Safety Report 14770446 (Version 1)
Quarter: 2018Q2

REPORT INFORMATION
  Report Type: Spontaneous
  Country: US (occurrence: US)
  Receive Date: 20180417
  Receipt Date: 20180417
  Transmission Date: 20180711
  Serious: No
  Sender: FDA-Public Use
  Company Number: US-MYLANLABS-2018M1021919

PATIENT
  Age: 49 Year
  Sex: Female
  Weight: 95 kg

DRUGS (1)
  1. EPIPEN [Suspect]
     Active Substance: EPINEPHRINE
     Indication: ARTHROPOD BITE
     Dosage: UNK
     Route: 030

REACTIONS (3)
  - Accidental exposure to product [Unknown]
  - Feeling jittery [Unknown]
  - Device breakage [Unknown]

NARRATIVE: CASE EVENT DATE: 20180324
